FAERS Safety Report 6155529-5 (Version None)
Quarter: 2009Q2

REPORT INFORMATION
  Report Type: 
  Country: None (occurrence: None)
  Receive Date: 20090413
  Receipt Date: 20090324
  Transmission Date: 20091009
  Serious: Yes (Disabling, Other)
  Sender: FDA-Public Use
  Company Number: 2009AL001742

PATIENT
  Sex: Female

DRUGS (3)
  1. METOCLOPRAMIDE [Suspect]
     Indication: ABDOMINAL PAIN
     Dates: start: 20060301, end: 20070220
  2. METOCLOPRAMIDE [Suspect]
     Indication: NAUSEA
     Dates: start: 20060301, end: 20070220
  3. METOCLOPRAMIDE [Suspect]
     Indication: VOMITING
     Dates: start: 20060301, end: 20070220

REACTIONS (6)
  - ANXIETY [None]
  - DYSKINESIA [None]
  - EXTRAPYRAMIDAL DISORDER [None]
  - INJURY [None]
  - PAIN [None]
  - TARDIVE DYSKINESIA [None]
